FAERS Safety Report 9836277 (Version 2)
Quarter: 2014Q1

REPORT INFORMATION
  Report Type: Spontaneous
  Country: US (occurrence: US)
  Receive Date: 20140123
  Receipt Date: 20140211
  Transmission Date: 20141002
  Serious: Yes (Other)
  Sender: FDA-Public Use
  Company Number: US-DRREDDYS-USA/USA/14/0037304

PATIENT
  Age: 44 Year
  Sex: Female

DRUGS (1)
  1. ZENATANE [Suspect]
     Indication: ACNE
     Route: 065
     Dates: start: 20130410, end: 20131030

REACTIONS (1)
  - Depression [Recovered/Resolved]
